FAERS Safety Report 12544772 (Version 1)
Quarter: 2016Q3

REPORT INFORMATION
  Report Type: Spontaneous
  Country: TR (occurrence: IR)
  Receive Date: 20160711
  Receipt Date: 20160711
  Transmission Date: 20161109
  Serious: Yes (Hospitalization)
  Sender: FDA-Public Use
  Company Number: TR-SA-2016SA123554

PATIENT
  Age: 36 Year
  Sex: Female

DRUGS (2)
  1. RIFAMPICIN [Suspect]
     Active Substance: RIFAMPIN
     Indication: BRUCELLOSIS
     Route: 065
  2. TRIMETHOPRIM/SULFAMETHOXAZOLE [Suspect]
     Active Substance: SULFAMETHOXAZOLE\TRIMETHOPRIM
     Indication: BRUCELLOSIS
     Route: 065

REACTIONS (11)
  - Drug ineffective [Unknown]
  - Foetal heart rate abnormal [Unknown]
  - Foetal death [Unknown]
  - Vaginal discharge [Unknown]
  - Aborted pregnancy [Unknown]
  - Brucellosis [Not Recovered/Not Resolved]
  - Condition aggravated [Unknown]
  - Chills [Not Recovered/Not Resolved]
  - Hyperhidrosis [Not Recovered/Not Resolved]
  - Vaginal haemorrhage [Unknown]
  - Exposure during pregnancy [Unknown]
